FAERS Safety Report 7044918-2 (Version None)
Quarter: 2010Q4

REPORT INFORMATION
  Report Type: 
  Country: None (occurrence: None)
  Receive Date: 20101013
  Receipt Date: 20101013
  Transmission Date: 20110411
  Serious: Yes (Other)
  Sender: FDA-Public Use
  Company Number: None

PATIENT
  Age: 54 Year
  Sex: Female

DRUGS (1)
  1. NIFEDICAL XL 30 MG TEVA [Suspect]
     Indication: HYPERTENSION
     Dosage: #30 ONE DAILY BY MOUTH
     Route: 048
     Dates: start: 20090403

REACTIONS (1)
  - BLOOD PRESSURE FLUCTUATION [None]
